FAERS Safety Report 9514502 (Version 1)
Quarter: 2013Q3

REPORT INFORMATION
  Report Type: Spontaneous
  Country: GB (occurrence: GB)
  Receive Date: 20130911
  Receipt Date: 20130911
  Transmission Date: 20140515
  Serious: Yes (Hospitalization)
  Sender: FDA-Public Use
  Company Number: GB-009507513-1309GBR003495

PATIENT
  Sex: 0

DRUGS (1)
  1. ISENTRESS [Suspect]

REACTIONS (2)
  - Adverse event [Unknown]
  - Gastrointestinal tube insertion [Unknown]
